FAERS Safety Report 5004977-5 (Version None)
Quarter: 2006Q2

REPORT INFORMATION
  Report Type: 
  Country: None (occurrence: None)
  Receive Date: 20060517
  Receipt Date: 20060510
  Transmission Date: 20061013
  Serious: Yes (Hospitalization)
  Sender: FDA-Public Use
  Company Number: DE-BOEHRINGER INGELHEIM PHARMACEUTICALS, INC.-2006-DE-02434DE

PATIENT
  Sex: Male

DRUGS (2)
  1. VIRAMUNE [Suspect]
  2. COMBIVIR [Suspect]

REACTIONS (1)
  - ARTHRITIS REACTIVE [None]
